FAERS Safety Report 6600839-8 (Version None)
Quarter: 2010Q1

REPORT INFORMATION
  Report Type: 
  Country: None (occurrence: None)
  Receive Date: 20100225
  Receipt Date: 20100210
  Transmission Date: 20100710
  Serious: No
  Sender: FDA-Public Use
  Company Number: US-ELI_LILLY_AND_COMPANY-US201001004810

PATIENT
  Sex: Female

DRUGS (20)
  1. FORTEO [Suspect]
     Indication: OSTEOPOROSIS
     Dosage: 20 UG, DAILY (1/D)
     Route: 065
     Dates: start: 20090801
  2. CYMBALTA [Concomitant]
     Indication: DEPRESSION
     Dosage: 30 MG, DAILY (1/D)
     Dates: start: 20090601
  3. PREDNISONE TAB [Concomitant]
     Indication: RHEUMATOID ARTHRITIS
     Dosage: 10 MG, UNK
     Route: 065
  4. ARAVA [Concomitant]
     Dosage: 20 MG, UNK
  5. PAXIL [Concomitant]
  6. NEXIUM [Concomitant]
  7. LISINOPRIL [Concomitant]
  8. ORAL CONTRACEPTIVE NOS [Concomitant]
  9. LORAZEPAM [Concomitant]
     Dosage: UNK, AS NEEDED
  10. LORTAB [Concomitant]
  11. DARVOCET [Concomitant]
  12. CALCIUM [Concomitant]
  13. FISH OIL [Concomitant]
  14. FOLIC ACID [Concomitant]
  15. VITAMIN D [Concomitant]
  16. METHOTREXATE [Concomitant]
  17. VOLTAREN [Concomitant]
  18. CICLESONIDE [Concomitant]
  19. GLUCOSAMINE [Concomitant]
  20. LYRICA [Concomitant]

REACTIONS (2)
  - INJECTION SITE ANAESTHESIA [None]
  - INJECTION SITE PAIN [None]
